FAERS Safety Report 14488498 (Version 5)
Quarter: 2018Q2

REPORT INFORMATION
  Report Type: Spontaneous
  Country: CA (occurrence: CA)
  Receive Date: 20180205
  Receipt Date: 20180615
  Transmission Date: 20180711
  Serious: Yes (Hospitalization, Other)
  Sender: FDA-Public Use
  Company Number: CA-PFIZER INC-2018049559

PATIENT
  Age: 35 Year
  Sex: Male

DRUGS (12)
  1. SYMBICORT [Suspect]
     Active Substance: BUDESONIDE\FORMOTEROL FUMARATE DIHYDRATE
     Dosage: TWO DOSAGE FORM, TWICE DAILY
     Route: 065
     Dates: start: 20161110
  2. AMOXICILLIN TRIHYDRATE AND POTASSIUM CLAVULAN [Suspect]
     Active Substance: AMOXICILLIN\CLAVULANATE POTASSIUM
     Dosage: ONE DOSAGE FORM, TWICE DAILY
     Route: 065
     Dates: start: 20160104
  3. SALBUTAMOL SULFATE [Suspect]
     Active Substance: ALBUTEROL SULFATE
     Dosage: TWO DOSAGE FORM OF AN UNKNOWN FREQUENCY
     Route: 065
     Dates: start: 20150825
  4. PANTOPRAZOLE [Suspect]
     Active Substance: PANTOPRAZOLE
     Dosage: ONE DOSAGE FORM, DAILY
     Route: 065
  5. NUCALA [Suspect]
     Active Substance: MEPOLIZUMAB
     Indication: ASTHMA
     Dosage: 100 MG, MONTHLY
     Route: 042
     Dates: start: 20170831
  6. PREDNISONE. [Suspect]
     Active Substance: PREDNISONE
     Dosage: UNK
     Route: 048
     Dates: start: 20160104
  7. SULFAMETHOXAZOLE AND TRIMETHOPRIM [Suspect]
     Active Substance: SULFAMETHOXAZOLE\TRIMETHOPRIM
     Dosage: ONE DOSAGE FORM TWICE DAILY
     Route: 065
     Dates: start: 20160505
  8. AMOXICILLIN. [Suspect]
     Active Substance: AMOXICILLIN
     Dosage: TWO DOSAGE FORM, THREE TIMES DAILY
     Route: 065
     Dates: start: 20151104
  9. NYSTATIN. [Suspect]
     Active Substance: NYSTATIN
     Dosage: 40 ML, QD
     Route: 065
     Dates: start: 20160104
  10. SPIRIVA [Suspect]
     Active Substance: TIOTROPIUM BROMIDE MONOHYDRATE
     Dosage: UNK, QD
     Route: 065
     Dates: start: 20160921
  11. BECLOMETASONE DIPROPIONATE [Suspect]
     Active Substance: BECLOMETHASONE DIPROPIONATE
     Dosage: TWO DOSAGE FORM ONCE DAILY
     Route: 065
     Dates: start: 20090821
  12. TUDORZA PRESSAIR [Suspect]
     Active Substance: ACLIDINIUM BROMIDE
     Dosage: ONE DOSAGE FORM, TWICE DAILY
     Route: 065
     Dates: start: 20151104

REACTIONS (23)
  - Asthma [Unknown]
  - Decreased activity [Unknown]
  - Dyspnoea [Unknown]
  - Irritability [Unknown]
  - Mood swings [Unknown]
  - Oral candidiasis [Unknown]
  - Productive cough [Unknown]
  - Weight increased [Unknown]
  - Oxygen saturation decreased [Unknown]
  - Psychiatric symptom [Unknown]
  - Pulmonary congestion [Recovered/Resolved]
  - Sleep disorder [Unknown]
  - Sinusitis [Recovered/Resolved]
  - Asthenia [Unknown]
  - Fatigue [Unknown]
  - Therapeutic response decreased [Unknown]
  - Immune system disorder [Unknown]
  - Quality of life decreased [Unknown]
  - Cognitive disorder [Unknown]
  - Depression [Unknown]
  - General physical health deterioration [Unknown]
  - Malaise [Unknown]
  - Personal relationship issue [Recovered/Resolved]
